FAERS Safety Report 17228775 (Version 1)
Quarter: 2020Q1

REPORT INFORMATION
  Report Type: Spontaneous
  Country: US (occurrence: US)
  Receive Date: 20200102
  Receipt Date: 20200102
  Transmission Date: 20200409
  Serious: No
  Sender: FDA-Public Use
  Company Number: None

PATIENT
  Age: 67 Year
  Sex: Male
  Weight: 57.6 kg

DRUGS (3)
  1. DAILY CALCIUM+D3 [Concomitant]
  2. DAILY MULTIVITAMIN W/IRON [Concomitant]
  3. COLGATE BAKING SODA AND PEROXIDE WHITENING BRISK MINT [Suspect]
     Active Substance: SODIUM MONOFLUOROPHOSPHATE
     Indication: DENTAL DISORDER PROPHYLAXIS
     Dosage: ?          OTHER ROUTE:ON TEETH?

REACTIONS (3)
  - Dry skin [None]
  - Erythema [None]
  - Peripheral swelling [None]

NARRATIVE: CASE EVENT DATE: 20191216
